FAERS Safety Report 13762272 (Version 1)
Quarter: 2017Q3

REPORT INFORMATION
  Report Type: Spontaneous
  Country: US (occurrence: US)
  Receive Date: 20170717
  Receipt Date: 20170717
  Transmission Date: 20171127
  Serious: Yes (Other)
  Sender: FDA-Public Use
  Company Number: None

PATIENT
  Age: 42 Year
  Sex: Female

DRUGS (1)
  1. DESVENLAFAXINE. [Suspect]
     Active Substance: DESVENLAFAXINE
     Indication: DEPRESSION
     Dosage: ?          OTHER DOSE:MG;?
     Route: 048
     Dates: start: 20170328, end: 20170716

REACTIONS (2)
  - Product substitution issue [None]
  - Depressed mood [None]

NARRATIVE: CASE EVENT DATE: 20170608
